FAERS Safety Report 5386268-6 (Version None)
Quarter: 2007Q3

REPORT INFORMATION
  Report Type: 
  Country: None (occurrence: None)
  Receive Date: 20070713
  Receipt Date: 20070704
  Transmission Date: 20080115
  Serious: Yes (Hospitalization)
  Sender: FDA-Public Use
  Company Number: PHHO2007NL09912

PATIENT
  Age: 64 Year
  Weight: 68.6 kg

DRUGS (3)
  1. RAD OR NEORAL VS MYFORTIC [Suspect]
     Dosage: 1080 MG, TID
     Route: 048
     Dates: start: 20061025, end: 20070116
  2. RAD OR NEORAL VS MYFORTIC [Suspect]
     Route: 048
     Dates: start: 20070117
  3. CYCLOSPORINE [Suspect]
     Indication: RENAL TRANSPLANT
     Route: 048
     Dates: start: 20070117, end: 20070206

REACTIONS (4)
  - BLOOD CREATININE INCREASED [None]
  - DRUG INEFFECTIVE [None]
  - KIDNEY TRANSPLANT REJECTION [None]
  - LUNG INFILTRATION [None]
